FAERS Safety Report 8135113-4 (Version None)
Quarter: 2012Q1

REPORT INFORMATION
  Report Type: 
  Country: None (occurrence: None)
  Receive Date: 20120214
  Receipt Date: 20120206
  Transmission Date: 20120608
  Serious: Yes (Hospitalization)
  Sender: FDA-Public Use
  Company Number: US-BAYER-2011-063285

PATIENT
  Age: 36 Year
  Sex: Female
  Weight: 133.33 kg

DRUGS (11)
  1. YASMIN [Suspect]
     Indication: ACNE
     Dosage: UNK
     Route: 048
     Dates: start: 20061220, end: 20091202
  2. YASMIN [Suspect]
     Indication: MENSTRUATION IRREGULAR
  3. DROSPIRENONE AND ETHINYL ESTRADIOL [Suspect]
     Indication: MENSTRUATION IRREGULAR
  4. GABAPENTIN [Concomitant]
  5. VITAMIN D [Concomitant]
  6. DROSPIRENONE AND ETHINYL ESTRADIOL [Suspect]
     Indication: ACNE
     Dosage: UNK
     Route: 048
     Dates: start: 20061220, end: 20091202
  7. DROSPIRENONE AND ETHINYL ESTRADIOL [Suspect]
     Indication: PREMENSTRUAL SYNDROME
  8. EFFEXOR [Concomitant]
  9. WELLBUTRIN [Concomitant]
  10. YASMIN [Suspect]
     Indication: PREMENSTRUAL SYNDROME
  11. PRILOSEC [Concomitant]

REACTIONS (9)
  - LIMB DISCOMFORT [None]
  - DYSPNOEA [None]
  - PULMONARY EMBOLISM [None]
  - DEEP VEIN THROMBOSIS [None]
  - MENTAL DISORDER [None]
  - EMOTIONAL DISTRESS [None]
  - GENERAL PHYSICAL HEALTH DETERIORATION [None]
  - PAIN [None]
  - ANXIETY [None]
